FAERS Safety Report 22263843 (Version 1)
Quarter: 2023Q2

REPORT INFORMATION
  Report Type: Spontaneous
  Country: US (occurrence: US)
  Receive Date: 20230428
  Receipt Date: 20230428
  Transmission Date: 20230721
  Serious: Yes (Hospitalization, Other)
  Sender: FDA-Public Use
  Company Number: US-LUPIN PHARMACEUTICALS INC.-2023-03189

PATIENT
  Age: 21 Year
  Sex: Male

DRUGS (11)
  1. BUPROPION [Interacting]
     Active Substance: BUPROPION
     Indication: Product used for unknown indication
     Dosage: 150 MG, QD (FORMULATION: EXTENDED RELEASE)
     Route: 065
  2. BUPROPION [Interacting]
     Active Substance: BUPROPION
     Dosage: 300 MG, QD (FORMULATION: EXTENDED RELEASE)
     Route: 065
  3. QUETIAPINE FUMARATE [Suspect]
     Active Substance: QUETIAPINE FUMARATE
     Indication: Insomnia
     Dosage: 100 MG (AT NIGHT)
     Route: 065
  4. QUETIAPINE FUMARATE [Suspect]
     Active Substance: QUETIAPINE FUMARATE
     Dosage: 400 MG (AT NIGHT)
     Route: 065
  5. QUETIAPINE FUMARATE [Suspect]
     Active Substance: QUETIAPINE FUMARATE
     Dosage: 200 MG (AT NIGHT)
     Route: 065
  6. ATOMOXETINE [Interacting]
     Active Substance: ATOMOXETINE
     Indication: Product used for unknown indication
     Dosage: 40 MG, QD
     Route: 065
  7. ATOMOXETINE [Interacting]
     Active Substance: ATOMOXETINE
     Dosage: 60 MG, QD
     Route: 065
  8. ALPRAZOLAM [Concomitant]
     Active Substance: ALPRAZOLAM
     Indication: Anxiety disorder
     Dosage: 0.25 MG
     Route: 065
  9. LORAZEPAM [Concomitant]
     Active Substance: LORAZEPAM
     Indication: Agitation
     Dosage: 1 MG, TID
     Route: 065
  10. LORAZEPAM [Concomitant]
     Active Substance: LORAZEPAM
     Dosage: 0.5 MG, QD
     Route: 065
  11. DIVALPROEX SODIUM [Concomitant]
     Active Substance: DIVALPROEX SODIUM
     Indication: Seizure
     Dosage: 1500 MG, QD (TITRATED UPTO 1500 MG TOTAL DAILY DOSE)
     Route: 065

REACTIONS (6)
  - Seizure [Unknown]
  - Psychotic disorder [Unknown]
  - Manic symptom [Unknown]
  - Toxicity to various agents [Unknown]
  - Drug interaction [Unknown]
  - Off label use [Unknown]
